FAERS Safety Report 20529887 (Version 1)
Quarter: 2022Q1

REPORT INFORMATION
  Report Type: Report from Study
  Country: US (occurrence: US)
  Receive Date: 20220301
  Receipt Date: 20220301
  Transmission Date: 20220424
  Serious: Yes (Other)
  Sender: FDA-Public Use
  Company Number: US-BRISTOL-MYERS SQUIBB COMPANY-BMS-2022-027981

PATIENT
  Age: 56 Year
  Sex: Female
  Weight: 97.522 kg

DRUGS (2)
  1. ABATACEPT [Suspect]
     Active Substance: ABATACEPT
     Indication: Rheumatoid arthritis
     Dosage: 125 MILLIGRAM, QWK
     Route: 065
     Dates: start: 202110
  2. ABATACEPT [Suspect]
     Active Substance: ABATACEPT
     Indication: Rheumatoid arthritis
     Dosage: 125 MILLIGRAM, QWK
     Route: 065
     Dates: start: 202110

REACTIONS (6)
  - Diabetes mellitus [Unknown]
  - Feeling abnormal [Unknown]
  - Anxiety [Unknown]
  - Somnolence [Unknown]
  - Bronchitis [Unknown]
  - Memory impairment [Unknown]

NARRATIVE: CASE EVENT DATE: 20220201
